FAERS Safety Report 5301178-8 (Version None)
Quarter: 2007Q1

REPORT INFORMATION
  Report Type: 
  Country: None (occurrence: None)
  Receive Date: 20070201
  Receipt Date: 20061219
  Transmission Date: 20070707
  Serious: No
  Sender: FDA-Public Use
  Company Number: 2006PV027195

PATIENT
  Age: 48 Year
  Sex: Male

DRUGS (9)
  1. BYETTA [Suspect]
     Indication: DIABETES MELLITUS NON-INSULIN-DEPENDENT
     Dosage: SEE IMAGE
     Route: 058
     Dates: start: 20061112, end: 20061206
  2. BYETTA [Suspect]
     Indication: DIABETES MELLITUS NON-INSULIN-DEPENDENT
     Dosage: SEE IMAGE
     Route: 058
     Dates: start: 20061207
  3. LEVAQUIN [Suspect]
     Indication: SINUSITIS
     Dates: start: 20061215
  4. BIAXIN [Suspect]
     Indication: SINUSITIS
     Dates: start: 20061211
  5. ACTOS [Concomitant]
  6. METFORMIN HCL [Concomitant]
  7. INSULIN [Concomitant]
  8. ZETIA [Concomitant]
  9. LIPITOR [Concomitant]

REACTIONS (3)
  - BLOOD GLUCOSE DECREASED [None]
  - FEELING ABNORMAL [None]
  - SINUSITIS [None]
